FAERS Safety Report 5165818-9 (Version None)
Quarter: 2006Q4

REPORT INFORMATION
  Report Type: 
  Country: None (occurrence: None)
  Receive Date: 20061128
  Receipt Date: 20061117
  Transmission Date: 20070319
  Serious: Yes (Disabling)
  Sender: FDA-Public Use
  Company Number: OSCN-NO-0611S-0344

PATIENT
  Age: 58 Year
  Sex: Male
  Weight: 60 kg

DRUGS (1)
  1. OMNISCAN [Suspect]
     Indication: DRUG USE FOR UNKNOWN INDICATION
     Dosage: SINGLE DOSE, I.V.
     Route: 042
     Dates: start: 20050816, end: 20050816

REACTIONS (6)
  - DYSPHONIA [None]
  - KIDNEY FIBROSIS [None]
  - MUSCLE CONTRACTURE [None]
  - MUSCULOSKELETAL STIFFNESS [None]
  - SKIN DISORDER [None]
  - VOCAL CORD PARESIS [None]
